FAERS Safety Report 4567389-4 (Version None)
Quarter: 2005Q1

REPORT INFORMATION
  Report Type: 
  Country: None (occurrence: None)
  Receive Date: 20050127
  Receipt Date: 20041229
  Transmission Date: 20050727
  Serious: Yes (Hospitalization)
  Sender: FDA-Public Use
  Company Number: WAES 0412BEL00053

PATIENT
  Age: 8 Day
  Sex: Male

DRUGS (7)
  1. INDOCIN I.V. [Suspect]
     Indication: PATENT DUCTUS ARTERIOSUS
     Dosage: 0.2 MG/KG/DAILY; IV
     Route: 042
  2. DEXAMETHASONE SODIUM POSPHATE [Suspect]
     Indication: PROPHYLAXIS
     Dosage: SEE IMAGE
     Route: 042
  3. AMPICILLINE [Concomitant]
  4. BERACTANT [Concomitant]
  5. CEFOTAXIME SODIUM [Concomitant]
  6. INSULIN [Concomitant]
  7. RANITIDINE [Concomitant]

REACTIONS (5)
  - DIVERTICULAR HERNIA [None]
  - HYPERGLYCAEMIA [None]
  - INTESTINAL ISCHAEMIA [None]
  - INTESTINAL PERFORATION [None]
  - NECROSIS [None]
